FAERS Safety Report 7235839-0 (Version None)
Quarter: 2011Q1

REPORT INFORMATION
  Report Type: 
  Country: None (occurrence: None)
  Receive Date: 20110120
  Receipt Date: 20110112
  Transmission Date: 20110831
  Serious: Yes (Hospitalization)
  Sender: FDA-Public Use
  Company Number: JP-ROCHE-746467

PATIENT
  Sex: Male
  Weight: 51 kg

DRUGS (12)
  1. XELODA [Suspect]
     Dosage: IT IS ONE ADMINISTERING WEEKLY HOLIDAY MEDICINE FOR TWO WEEKS.
     Route: 048
     Dates: start: 20100826, end: 20101118
  2. GLIMICRON [Concomitant]
     Route: 048
     Dates: end: 20101216
  3. ELPLAT [Concomitant]
     Dosage: DOSAGE UNCERTAIN
     Route: 041
  4. ACTOS [Concomitant]
     Route: 048
     Dates: end: 20101216
  5. BERIZYM [Concomitant]
     Dosage: GRANULATED POWDER
     Route: 048
  6. RIKKUNSHI-TO [Concomitant]
     Route: 048
     Dates: end: 20100901
  7. KYTRIL [Concomitant]
     Dosage: PERORAL AGENT
     Route: 048
     Dates: start: 20100805, end: 20100806
  8. PARIET [Concomitant]
     Route: 048
  9. MINOMYCIN [Concomitant]
     Route: 048
     Dates: start: 20100913, end: 20101207
  10. XELODA [Suspect]
     Indication: LARGE INTESTINE CARCINOMA
     Route: 048
     Dates: start: 20100804, end: 20100818
  11. MAGLAX [Concomitant]
     Route: 048
  12. MELBIN [Concomitant]
     Route: 048
     Dates: end: 20101216

REACTIONS (5)
  - ASCITES [None]
  - PALMAR-PLANTAR ERYTHRODYSAESTHESIA SYNDROME [None]
  - ANXIETY [None]
  - INSOMNIA [None]
  - HEPATIC FUNCTION ABNORMAL [None]
